FAERS Safety Report 12499568 (Version 3)
Quarter: 2016Q3

REPORT INFORMATION
  Report Type: Spontaneous
  Country: US (occurrence: US)
  Receive Date: 20160627
  Receipt Date: 20160930
  Transmission Date: 20161109
  Serious: Yes (Other)
  Sender: FDA-Public Use
  Company Number: US-OTSUKA-2016_012430

PATIENT
  Age: 28 Year
  Sex: Male

DRUGS (1)
  1. ABILIFY MAINTENA [Suspect]
     Active Substance: ARIPIPRAZOLE
     Indication: PRODUCT USED FOR UNKNOWN INDICATION
     Dosage: 400 MG, UNK
     Route: 030

REACTIONS (7)
  - Delusion [Unknown]
  - Drug administered at inappropriate site [Unknown]
  - Chest pain [Unknown]
  - Treatment noncompliance [Unknown]
  - Electrocardiogram abnormal [Unknown]
  - Extrasystoles [Unknown]
  - Heart rate irregular [Unknown]
